FAERS Safety Report 19730593 (Version 5)
Quarter: 2022Q1

REPORT INFORMATION
  Report Type: Spontaneous
  Country: IN (occurrence: IN)
  Receive Date: 20210820
  Receipt Date: 20220222
  Transmission Date: 20220423
  Serious: Yes (Death, Other)
  Sender: FDA-Public Use
  Company Number: IN-PFIZER INC-2020317537

PATIENT
  Age: 70 Year
  Sex: Female

DRUGS (9)
  1. PALBOCICLIB [Suspect]
     Active Substance: PALBOCICLIB
     Indication: Breast cancer metastatic
     Dosage: 125 MG, 1X/DAY
     Route: 048
     Dates: start: 20191116
  2. PALBOCICLIB [Suspect]
     Active Substance: PALBOCICLIB
     Dosage: 100 MG, CYCLIC: ONCE DAILY (OD) X 3 WEEKS THEN 1 WEEK OFF
     Route: 048
     Dates: start: 20191120
  3. PALBOCICLIB [Suspect]
     Active Substance: PALBOCICLIB
     Dosage: 100 MG, CYCLIC: ONCE DAILY (OD) X 3 WEEKS THEN 1 WEEK OFF
     Route: 048
     Dates: start: 20211014
  4. LETROZOLE [Concomitant]
     Active Substance: LETROZOLE
     Dosage: UNK, 1X/DAY
  5. ZOLEDRONIC [Concomitant]
     Active Substance: ZOLEDRONIC ACID
     Dosage: 4 MG, MONTHLY
     Route: 042
  6. FEFOL Z [Concomitant]
     Dosage: UNK, 1X/DAY
  7. ACTORISE [Concomitant]
     Dosage: ONCE / 2 WEEKS
     Route: 058
  8. SHELCAL [CALCIUM CARBONATE;COLECALCIFEROL] [Concomitant]
     Dosage: UNK, 1X/DAY
  9. TCA [Concomitant]
     Dosage: 2-3 MONTHS

REACTIONS (4)
  - Death [Fatal]
  - Diabetes mellitus [Unknown]
  - Haemoglobin decreased [Unknown]
  - Blood calcium abnormal [Unknown]

NARRATIVE: CASE EVENT DATE: 20220129
